FAERS Safety Report 5017038-6 (Version None)
Quarter: 2006Q2

REPORT INFORMATION
  Report Type: 
  Country: None (occurrence: None)
  Receive Date: 20060526
  Receipt Date: 20060519
  Transmission Date: 20061013
  Serious: Yes (Other)
  Sender: FDA-Public Use
  Company Number: 222958

PATIENT
  Age: 67 Year
  Sex: Female

DRUGS (1)
  1. RITUXAN [Suspect]
     Indication: B-CELL LYMPHOMA

REACTIONS (4)
  - LEUKOCYTOCLASTIC VASCULITIS [None]
  - MOUTH ULCERATION [None]
  - REFUSAL OF TREATMENT BY PATIENT [None]
  - TONGUE ULCERATION [None]
